FAERS Safety Report 23149912 (Version 1)
Quarter: 2023Q4

REPORT INFORMATION
  Report Type: Spontaneous
  Country: ES (occurrence: ES)
  Receive Date: 20231106
  Receipt Date: 20231106
  Transmission Date: 20240110
  Serious: Yes (Hospitalization)
  Sender: FDA-Public Use
  Company Number: None

PATIENT
  Age: 71 Year
  Sex: Female

DRUGS (4)
  1. PACLITAXEL [Suspect]
     Active Substance: PACLITAXEL
     Indication: Invasive ductal breast carcinoma
     Dosage: 114 MG FIRST 2 DOSES (D1, D8), 86 MG THIRD DOSE (D15)?ROA-20045000
     Route: 042
     Dates: start: 20230710, end: 20230725
  2. CARBOPLATIN [Suspect]
     Active Substance: CARBOPLATIN
     Indication: Invasive ductal breast carcinoma
     Dosage: 400 MG DU?ROA-20045000
     Route: 042
     Dates: start: 20230710, end: 20230710
  3. ATORVASTATIN [Suspect]
     Active Substance: ATORVASTATIN
     Indication: Dyslipidaemia
     Dosage: 1 PER DAY?ROA-20053000
     Route: 048
     Dates: start: 20230710, end: 20230801
  4. OMEPRAZOLE SODIUM [Suspect]
     Active Substance: OMEPRAZOLE SODIUM
     Indication: Prophylaxis
     Dosage: 1 PER DAY?ROA-20053000
     Route: 048
     Dates: start: 20230710, end: 20230801

REACTIONS (1)
  - Mixed liver injury [Recovered/Resolved]

NARRATIVE: CASE EVENT DATE: 20230724
